FAERS Safety Report 9769460 (Version 2)
Quarter: 2014Q1

REPORT INFORMATION
  Report Type: Report from Study
  Country: DE (occurrence: DE)
  Receive Date: 20131218
  Receipt Date: 20140314
  Transmission Date: 20141002
  Serious: No
  Sender: FDA-Public Use
  Company Number: DE-SA-2013SA129627

PATIENT
  Age: 23 Year
  Sex: Female

DRUGS (2)
  1. AUBAGIO [Suspect]
     Indication: MULTIPLE SCLEROSIS
     Route: 048
     Dates: start: 20131202
  2. ELTROXIN [Concomitant]
     Indication: HYPOTHYROIDISM
     Route: 048
     Dates: end: 201312

REACTIONS (7)
  - Acute tonsillitis [Not Recovered/Not Resolved]
  - Ovarian cyst [Recovered/Resolved]
  - Menstruation delayed [Not Recovered/Not Resolved]
  - Hyperthyroidism [Unknown]
  - Oropharyngeal pain [Unknown]
  - Dysphagia [Unknown]
  - Goitre [Unknown]
